FAERS Safety Report 8919656 (Version 1)
Quarter: 2012Q4

REPORT INFORMATION
  Report Type: 
  Country: US (occurrence: US)
  Receive Date: 20121121
  Receipt Date: 20121121
  Transmission Date: 20130627
  Serious: Yes (Other)
  Sender: FDA-Public Use
  Company Number: US-BAYER-2012-089947

PATIENT
  Age: 67 Year
  Sex: Female
  Weight: 71 kg

DRUGS (19)
  1. TRASYLOL [Suspect]
     Indication: CORONARY ARTERY BYPASS GRAFT
     Dosage: 100 ml, loading dose
     Route: 048
     Dates: start: 20050421, end: 20050421
  2. TRASYLOL [Suspect]
     Indication: CORONARY ARTERY BYPASS GRAFT
     Dosage: 50 ml/hr
     Dates: start: 20050421, end: 20050421
  3. HUMULIN 70/30 [Concomitant]
     Dosage: 48 u, every morning
  4. BENICAR [Concomitant]
     Dosage: 40 mg, everyday
     Route: 048
  5. METOPROLOL [Concomitant]
     Dosage: 40 mg, BID
  6. DOXAZOSIN [Concomitant]
     Dosage: 40 mg, BID
     Route: 048
  7. STARLIX [Concomitant]
     Dosage: 120 mg, TID
     Route: 048
  8. LOTREL [Concomitant]
     Dosage: 520 mg, QD
     Route: 048
  9. CONTRAST MEDIA [Concomitant]
     Indication: CARDIAC CATHETERIZATION
     Dosage: UNK
     Dates: start: 20050420
  10. SEVOFLURANE [Concomitant]
     Dosage: UNK
     Dates: start: 20050421, end: 20050421
  11. VERSED [Concomitant]
     Dosage: UNK
     Dates: start: 20050421, end: 20050421
  12. SUFENTA [Concomitant]
     Dosage: UNK
     Dates: start: 20050421, end: 20050421
  13. VECURONIUM [Concomitant]
     Dosage: UNK
     Dates: start: 20050421, end: 20050421
  14. NEOSYNEPHRINE [Concomitant]
     Dosage: UNK
     Dates: start: 20050421
  15. HEPARIN [Concomitant]
     Dosage: UNK
     Dates: start: 20050421
  16. ANCEF [Concomitant]
     Dosage: 1 g, UNK
     Dates: start: 20050421, end: 20050421
  17. LIDOCAINE [Concomitant]
     Dosage: UNK
     Dates: start: 20050421, end: 20050421
  18. LASIX [Concomitant]
     Dosage: UNK
     Dates: start: 20050421, end: 20050421
  19. PROTAMINE [Concomitant]
     Dosage: UNK
     Dates: start: 20050421, end: 20050421

REACTIONS (1)
  - Renal failure acute [None]
